FAERS Safety Report 21397240 (Version 1)
Quarter: 2022Q3

REPORT INFORMATION
  Report Type: Spontaneous
  Country: US (occurrence: None)
  Receive Date: 20220929
  Receipt Date: 20220929
  Transmission Date: 20221027
  Serious: No
  Sender: FDA-Public Use
  Company Number: None

PATIENT
  Age: 68 Year
  Sex: Female
  Weight: 85.64 kg

DRUGS (13)
  1. ERLOTINIB [Suspect]
     Active Substance: ERLOTINIB
     Indication: Renal cancer
     Dosage: FREQUENCY : DAILY;?
     Route: 048
  2. CETIRIINE HCI [Concomitant]
  3. CITALOPRAM HYDROBROMIDE [Concomitant]
  4. OXYCYCLINE HYCLATE [Concomitant]
  5. HYDROCORTISONE [Concomitant]
  6. IBUPROFEN [Concomitant]
  7. LIPITOR [Concomitant]
  8. MIRALAX [Concomitant]
  9. OXYCODONE HCI [Concomitant]
  10. PEPCID AC MAXIMUM STRENGTH [Concomitant]
  11. STOOL SOFTENER [Concomitant]
  12. TEMPAZEPAM [Concomitant]
  13. TYLENOL [Concomitant]

REACTIONS (2)
  - Drug ineffective [None]
  - Therapy cessation [None]
